FAERS Safety Report 5851048-1 (Version None)
Quarter: 2008Q3

REPORT INFORMATION
  Report Type: 
  Country: None (occurrence: None)
  Receive Date: 20080820
  Receipt Date: 20080813
  Transmission Date: 20090109
  Serious: Yes (Death)
  Sender: FDA-Public Use
  Company Number: GB-TEVA-175803ISR

PATIENT
  Age: 85 Year
  Sex: Female

DRUGS (2)
  1. TRAZODONE HCL [Suspect]
     Indication: AGITATION
     Route: 048
     Dates: start: 20080802, end: 20080803
  2. TRAZODONE HCL [Suspect]
     Indication: DEMENTIA
     Route: 048

REACTIONS (1)
  - CARDIAC FAILURE [None]
